FAERS Safety Report 15505707 (Version 1)
Quarter: 2018Q4

REPORT INFORMATION
  Report Type: Spontaneous
  Country: GB (occurrence: GB)
  Receive Date: 20181016
  Receipt Date: 20181016
  Transmission Date: 20190205
  Serious: Yes (Other)
  Sender: FDA-Public Use
  Company Number: GB-ACCORD-048717

PATIENT
  Age: 82 Year
  Sex: Female

DRUGS (7)
  1. RANITIDINE. [Suspect]
     Active Substance: RANITIDINE
     Indication: GASTROOESOPHAGEAL REFLUX DISEASE
  2. ACETAMINOPHEN AND CODEINE [Concomitant]
     Active Substance: ACETAMINOPHEN\CODEINE PHOSPHATE
     Indication: CARPAL TUNNEL SYNDROME
     Dosage: AT NIGHT
  3. ERGOCALCIFEROL. [Concomitant]
     Active Substance: ERGOCALCIFEROL
  4. PARACETAMOL [Concomitant]
     Active Substance: ACETAMINOPHEN
     Indication: CARPAL TUNNEL SYNDROME
     Dosage: ON MORNING.
  5. EZETROL [Concomitant]
     Active Substance: EZETIMIBE
  6. OMEPRAZOLE. [Concomitant]
     Active Substance: OMEPRAZOLE
  7. FUROSEMIDE. [Suspect]
     Active Substance: FUROSEMIDE
     Indication: LIMB DISCOMFORT
     Dosage: STARTED 3 WEEKS BEFORE
     Dates: start: 201701

REACTIONS (4)
  - Off label use [Unknown]
  - Arthralgia [Not Recovered/Not Resolved]
  - Condition aggravated [Unknown]
  - Myalgia [Not Recovered/Not Resolved]
